FAERS Safety Report 12637415 (Version 1)
Quarter: 2016Q3

REPORT INFORMATION
  Report Type: Spontaneous
  Country: US (occurrence: US)
  Receive Date: 20160809
  Receipt Date: 20160809
  Transmission Date: 20161109
  Serious: No
  Sender: FDA-Public Use
  Company Number: US-BEH-2016061277

PATIENT
  Sex: Female
  Weight: 18 kg

DRUGS (10)
  1. PRIVIGEN [Suspect]
     Active Substance: HUMAN IMMUNOGLOBULIN G
     Indication: IMMUNODEFICIENCY COMMON VARIABLE
     Route: 042
  2. SODIUM CHLORIDE. [Concomitant]
     Active Substance: SODIUM CHLORIDE
  3. ACETAMINOPHEN. [Concomitant]
     Active Substance: ACETAMINOPHEN
  4. NORMAL SALINE [Concomitant]
     Active Substance: SODIUM CHLORIDE
  5. L-M-X [Concomitant]
  6. SOLU-MEDROL [Concomitant]
     Active Substance: METHYLPREDNISOLONE SODIUM SUCCINATE
  7. CEFIXIME. [Concomitant]
     Active Substance: CEFIXIME
  8. SUPRAX [Concomitant]
     Active Substance: CEFIXIME
  9. DIPHENHYDRAMINE. [Concomitant]
     Active Substance: DIPHENHYDRAMINE
  10. EPIPEN JR [Concomitant]
     Active Substance: EPINEPHRINE

REACTIONS (3)
  - Nausea [Unknown]
  - Anger [Unknown]
  - Sleep disorder [Unknown]
